FAERS Safety Report 8567592-2 (Version None)
Quarter: 2012Q3

REPORT INFORMATION
  Report Type: 
  Country: None (occurrence: None)
  Receive Date: 20120803
  Receipt Date: 20110919
  Transmission Date: 20120928
  Serious: No
  Sender: FDA-Public Use
  Company Number: US-ABBOTT-11P-163-0855758-00

PATIENT
  Sex: Female
  Weight: 78.088 kg

DRUGS (4)
  1. LEVOTHYROXINE SODIUM [Concomitant]
     Indication: HYPOTHYROIDISM
  2. VITAMIN TAB [Concomitant]
     Indication: PRODUCT USED FOR UNKNOWN INDICATION
  3. NIASPAN [Suspect]
     Indication: BLOOD CHOLESTEROL INCREASED
     Dosage: AT BEDTIME
     Dates: start: 20110915
  4. VESICARE [Concomitant]
     Indication: BLADDER SPASM

REACTIONS (4)
  - FLUSHING [None]
  - FEELING HOT [None]
  - PARAESTHESIA [None]
  - POOR QUALITY SLEEP [None]
